FAERS Safety Report 6163118-1 (Version None)
Quarter: 2009Q2

REPORT INFORMATION
  Report Type: 
  Country: None (occurrence: None)
  Receive Date: 20090422
  Receipt Date: 20090414
  Transmission Date: 20091009
  Serious: Yes (Other)
  Sender: FDA-Public Use
  Company Number: CA-JNJFOC-20090403590

PATIENT
  Age: 3 Decade
  Sex: Male

DRUGS (7)
  1. PREZISTA [Suspect]
     Indication: HIV INFECTION
  2. REYATAZ [Suspect]
     Indication: HIV INFECTION
  3. EPIVIR [Suspect]
     Indication: HIV INFECTION
  4. RETROVIR [Suspect]
     Indication: HIV INFECTION
  5. TRIZIVIR [Suspect]
     Indication: HIV INFECTION
  6. VIDEX [Suspect]
     Indication: HIV INFECTION
  7. SUSTIVA [Suspect]
     Indication: HIV INFECTION

REACTIONS (8)
  - ABDOMINAL PAIN [None]
  - ABNORMAL DREAMS [None]
  - DEPRESSION [None]
  - DIARRHOEA [None]
  - FATIGUE [None]
  - HEADACHE [None]
  - NAUSEA [None]
  - NIGHTMARE [None]
